FAERS Safety Report 8577752-2 (Version None)
Quarter: 2012Q3

REPORT INFORMATION
  Report Type: 
  Country: None (occurrence: None)
  Receive Date: 20120808
  Receipt Date: 20120801
  Transmission Date: 20120928
  Serious: Yes (Hospitalization)
  Sender: FDA-Public Use
  Company Number: US-BIOGENIDEC-2011BI045590

PATIENT
  Age: 41 Year
  Sex: Female
  Weight: 70 kg

DRUGS (13)
  1. KLONOPIN [Concomitant]
     Route: 048
  2. PREDNISONE [Concomitant]
  3. REMERON [Concomitant]
     Indication: SLEEP DISORDER
  4. PREDNISONE [Concomitant]
  5. PREDNISONE [Concomitant]
  6. TYSABRI [Suspect]
     Indication: MULTIPLE SCLEROSIS
     Route: 042
     Dates: start: 20080804, end: 20111114
  7. ZYPREXA [Concomitant]
     Route: 048
  8. PEPCID [Concomitant]
     Route: 048
  9. PREDNISONE [Concomitant]
  10. PREDNISONE [Concomitant]
  11. PREDNISONE [Concomitant]
  12. ADDERALL XR 10 [Concomitant]
     Route: 048
  13. PREDNISONE [Concomitant]

REACTIONS (1)
  - PROGRESSIVE MULTIFOCAL LEUKOENCEPHALOPATHY [None]
